FAERS Safety Report 8076549-X (Version None)
Quarter: 2012Q1

REPORT INFORMATION
  Report Type: 
  Country: None (occurrence: None)
  Receive Date: 20120127
  Receipt Date: 20120117
  Transmission Date: 20120608
  Serious: Yes (Hospitalization)
  Sender: FDA-Public Use
  Company Number: TW-BRISTOL-MYERS SQUIBB COMPANY-16354375

PATIENT
  Age: 51 Year
  Sex: Male

DRUGS (5)
  1. ERBITUX [Suspect]
     Indication: COLORECTAL CANCER METASTATIC
     Dosage: ALMOST 1 YEAR
     Route: 042
     Dates: start: 20071201, end: 20080401
  2. IRINOTECAN HCL [Suspect]
     Indication: COLORECTAL CANCER METASTATIC
     Dosage: 6+6 COURSES
     Route: 042
     Dates: start: 20090501
  3. LEUCOVORIN CALCIUM [Suspect]
     Indication: COLORECTAL CANCER METASTATIC
     Dosage: FOR ALMOST 1 YEAR 6+6 COURSES
     Route: 042
     Dates: start: 20090501
  4. FLUOROURACIL [Suspect]
     Indication: COLORECTAL CANCER METASTATIC
     Dosage: FOR ALMOST 1 YEAR 6+6 COURSES
     Route: 042
     Dates: start: 20090501
  5. AVASTIN [Suspect]
     Indication: COLORECTAL CANCER METASTATIC
     Dosage: 6+6 COURSES
     Route: 042
     Dates: start: 20090501

REACTIONS (3)
  - PANCREATITIS CHRONIC [None]
  - BILE DUCT OBSTRUCTION [None]
  - BLOOD BILIRUBIN INCREASED [None]
